FAERS Safety Report 9555799 (Version 1)
Quarter: 2013Q3

REPORT INFORMATION
  Report Type: Spontaneous
  Country: US (occurrence: None)
  Receive Date: 20130906
  Receipt Date: 20130906
  Transmission Date: 20140515
  Serious: Yes (Other)
  Sender: FDA-Public Use
  Company Number: 163-POMAL-13053781

PATIENT
  Age: 63 Year
  Sex: Female
  Weight: 56.7 kg

DRUGS (4)
  1. POMALYST (POMALIDOMIDE) (4 MILLIGRAM, CAPSULES) [Suspect]
     Indication: PLASMA CELL MYELOMA
     Dosage: 4 MG, 21 IN 28 D, PO
     Route: 048
     Dates: start: 20130518, end: 20130603
  2. DEXAMETHASONE (DEXAMEHTASONE) (TABLETS) [Concomitant]
  3. OXYCODONE (OXYCODONE) (UNKNOWN) (OXYCODONE) [Concomitant]
  4. STEROIDS (CORTICOSTEROIDS) (UNKNOWN) [Concomitant]

REACTIONS (2)
  - Flushing [None]
  - Psychomotor hyperactivity [None]
